FAERS Safety Report 8502265-3 (Version None)
Quarter: 2012Q3

REPORT INFORMATION
  Report Type: 
  Country: None (occurrence: None)
  Receive Date: 20120711
  Receipt Date: 20120706
  Transmission Date: 20120928
  Serious: Yes (Hospitalization, Other)
  Sender: FDA-Public Use
  Company Number: DE-BAYER-2011-100071

PATIENT
  Age: 42 Year
  Sex: Female

DRUGS (1)
  1. MIRENA [Suspect]
     Dosage: 20 MCG/24HR, CONT
     Dates: start: 20070214, end: 20110714

REACTIONS (7)
  - SALPINGITIS [None]
  - OOPHORITIS [None]
  - PERITONITIS [None]
  - HYDRONEPHROSIS [None]
  - VAGINAL HAEMORRHAGE [None]
  - ACTINOMYCOTIC ABDOMINAL INFECTION [None]
  - ABDOMINAL PAIN LOWER [None]
